FAERS Safety Report 23314432 (Version 1)
Quarter: 2023Q4

REPORT INFORMATION
  Report Type: Spontaneous
  Country: US (occurrence: US)
  Receive Date: 20231219
  Receipt Date: 20231219
  Transmission Date: 20240110
  Serious: Yes (Other)
  Sender: FDA-Public Use
  Company Number: US-PPDUS-2023ST005009

PATIENT
  Age: 58 Year
  Sex: Female

DRUGS (2)
  1. ORSERDU [Suspect]
     Active Substance: ELACESTRANT
     Indication: Product used for unknown indication
     Dosage: 345 MG ONCE A DAY
     Route: 048
     Dates: start: 20231107
  2. IBRANCE [Concomitant]
     Active Substance: PALBOCICLIB
     Indication: Breast cancer female
     Dosage: 125 MG DAILY FOR DAYS 1-21 OF A 28-DAY CYCLE
     Dates: start: 20230907

REACTIONS (7)
  - Neuropathy peripheral [Unknown]
  - Illness [Unknown]
  - Nasopharyngitis [Unknown]
  - Personality disorder [Unknown]
  - Decreased interest [Unknown]
  - Nausea [Unknown]
  - Fatigue [Unknown]
